FAERS Safety Report 15324492 (Version 1)
Quarter: 2018Q3

REPORT INFORMATION
  Report Type: Spontaneous
  Country: US (occurrence: US)
  Receive Date: 20180828
  Receipt Date: 20180828
  Transmission Date: 20181010
  Serious: Yes (Death)
  Sender: FDA-Public Use
  Company Number: US-INSYS THERAPEUTICS, INC-INS201808-000266

PATIENT
  Sex: Male

DRUGS (2)
  1. SYNDROS [Suspect]
     Active Substance: DRONABINOL
     Indication: NAUSEA
  2. SYNDROS [Suspect]
     Active Substance: DRONABINOL
     Indication: PROPHYLAXIS OF NAUSEA AND VOMITING

REACTIONS (1)
  - Death [Fatal]
